FAERS Safety Report 5095855-4 (Version None)
Quarter: 2006Q3

REPORT INFORMATION
  Report Type: 
  Country: None (occurrence: None)
  Receive Date: 20060726
  Receipt Date: 20060601
  Transmission Date: 20061208
  Serious: No
  Sender: FDA-Public Use
  Company Number: 012234

PATIENT
  Age: 42 Year
  Sex: Male

DRUGS (4)
  1. PRIALT [Suspect]
     Indication: PAIN
     Dosage: SEE IMAGE
     Route: 037
     Dates: start: 20051101, end: 20051101
  2. PRIALT [Suspect]
     Indication: PAIN
     Dosage: SEE IMAGE
     Route: 037
     Dates: start: 20051101, end: 20060201
  3. PRIALT [Suspect]
     Indication: PAIN
     Dosage: SEE IMAGE
     Route: 037
     Dates: start: 20060201, end: 20060501
  4. KADIAN [Concomitant]

REACTIONS (12)
  - AGEUSIA [None]
  - AMNESIA [None]
  - DEPRESSION [None]
  - DRY MOUTH [None]
  - DRY THROAT [None]
  - DYSPHONIA [None]
  - GLOSSODYNIA [None]
  - HALLUCINATION, VISUAL [None]
  - INSOMNIA [None]
  - NERVOUSNESS [None]
  - ORAL DISCOMFORT [None]
  - PAIN [None]
